FAERS Safety Report 7210961-3 (Version None)
Quarter: 2011Q1

REPORT INFORMATION
  Report Type: 
  Country: None (occurrence: None)
  Receive Date: 20110105
  Receipt Date: 20101230
  Transmission Date: 20110831
  Serious: Yes (Hospitalization)
  Sender: FDA-Public Use
  Company Number: A0902052A

PATIENT
  Age: 51 Year
  Sex: Female

DRUGS (2)
  1. ADVAIR [Suspect]
     Indication: ASTHMA
     Route: 055
  2. INHALER [Concomitant]

REACTIONS (4)
  - WHEEZING [None]
  - INCREASED UPPER AIRWAY SECRETION [None]
  - ASTHMA [None]
  - COUGH [None]
